FAERS Safety Report 6090778-6 (Version None)
Quarter: 2009Q1

REPORT INFORMATION
  Report Type: 
  Country: None (occurrence: None)
  Receive Date: 20090223
  Receipt Date: 20090212
  Transmission Date: 20090719
  Serious: Yes (Death, Other)
  Sender: FDA-Public Use
  Company Number: CERZ-1000520

PATIENT
  Age: 48 Year
  Sex: Female
  Weight: 77.3 kg

DRUGS (1)
  1. CEREZYME [Suspect]
     Indication: GAUCHER'S DISEASE
     Dosage: 4400 U, QW, INTRAVENOUS
     Route: 042
     Dates: start: 19990801, end: 20090201

REACTIONS (28)
  - ANXIETY [None]
  - ARTHROPATHY [None]
  - CARDIAC ARREST [None]
  - CARDIAC DISORDER [None]
  - CATARACT [None]
  - DIAPHRAGMATIC DISORDER [None]
  - DIZZINESS [None]
  - DYSPHAGIA [None]
  - DYSPNOEA [None]
  - GLAUCOMA [None]
  - HEADACHE [None]
  - HEPATOMEGALY [None]
  - HYPOXIA [None]
  - INFUSION RELATED REACTION [None]
  - INTERVERTEBRAL DISC PROTRUSION [None]
  - LARYNGEAL DISORDER [None]
  - MUSCLE SPASMS [None]
  - NAUSEA [None]
  - ORAL CANDIDIASIS [None]
  - PRURITUS [None]
  - PSYCHOTIC DISORDER [None]
  - PULMONARY HYPERTENSION [None]
  - PYREXIA [None]
  - THYROID NEOPLASM [None]
  - TRANSIENT ISCHAEMIC ATTACK [None]
  - VISUAL IMPAIRMENT [None]
  - VOCAL CORD ATROPHY [None]
  - WEIGHT DECREASED [None]
